FAERS Safety Report 5495760-5 (Version None)
Quarter: 2007Q4

REPORT INFORMATION
  Report Type: 
  Country: None (occurrence: None)
  Receive Date: 20071025
  Receipt Date: 20070201
  Transmission Date: 20080405
  Serious: No
  Sender: FDA-Public Use
  Company Number: A0623882A

PATIENT
  Sex: Female

DRUGS (10)
  1. ADVAIR DISKUS 100/50 [Suspect]
     Indication: ASTHMA
     Dosage: 1MG PER DAY
     Route: 055
  2. COUMADIN [Concomitant]
  3. SYNTHROID [Concomitant]
  4. PRILOSEC [Concomitant]
  5. FLORINEF [Concomitant]
  6. EYE DROPS [Concomitant]
  7. PAXIL [Concomitant]
  8. COSOPT [Concomitant]
  9. ZETIA [Concomitant]
  10. IPRATROPIUM SOLUTION [Concomitant]

REACTIONS (2)
  - DRUG INEFFECTIVE [None]
  - PHARMACEUTICAL PRODUCT COMPLAINT [None]
